FAERS Safety Report 23321758 (Version 2)
Quarter: 2024Q2

REPORT INFORMATION
  Report Type: Report from Study
  Country: US (occurrence: US)
  Receive Date: 20231220
  Receipt Date: 20240606
  Transmission Date: 20240715
  Serious: Yes (Other)
  Sender: FDA-Public Use
  Company Number: US-PARATEK PHARMACEUTICALS, INC.-2022PTK00264

PATIENT
  Age: 71 Year
  Sex: Male
  Weight: 89.796 kg

DRUGS (11)
  1. NUZYRA [Suspect]
     Active Substance: OMADACYCLINE
     Indication: Endocarditis
     Dosage: 300 MG, 1X/DAY
     Route: 048
     Dates: start: 20220528
  2. NUZYRA [Suspect]
     Active Substance: OMADACYCLINE
     Indication: Inflammation
     Dosage: 300 MG, 1X/DAY
     Route: 048
     Dates: start: 202206
  3. NUZYRA [Suspect]
     Active Substance: OMADACYCLINE
     Indication: Complication associated with device
     Dosage: 300 MG, 1X/DAY
     Route: 048
  4. NUZYRA [Suspect]
     Active Substance: OMADACYCLINE
     Indication: Osteomyelitis
     Dosage: 300 MG, 1X/DAY
     Route: 048
  5. NOVOLOG [Concomitant]
     Active Substance: INSULIN ASPART
     Dosage: SLIDING SCALE
     Dates: end: 2023
  6. NOVOLOG [Concomitant]
     Active Substance: INSULIN ASPART
     Dosage: INCREASED SLIDING SCALE
     Dates: start: 2023
  7. TOUJEO [Concomitant]
     Active Substance: INSULIN GLARGINE
     Dosage: UNK
  8. ENTRESTO [Concomitant]
     Active Substance: SACUBITRIL\VALSARTAN
  9. JARDIANCE [Concomitant]
     Active Substance: EMPAGLIFLOZIN
  10. GABAPENTIN [Concomitant]
     Active Substance: GABAPENTIN
  11. ELIQUIS [Concomitant]
     Active Substance: APIXABAN

REACTIONS (9)
  - Blood glucose increased [Not Recovered/Not Resolved]
  - Rash [Unknown]
  - Pain in extremity [Not Recovered/Not Resolved]
  - Tooth discolouration [Not Recovered/Not Resolved]
  - Teeth brittle [Not Recovered/Not Resolved]
  - Tooth fracture [Not Recovered/Not Resolved]
  - Platelet count decreased [Unknown]
  - Incorrect product administration duration [Not Recovered/Not Resolved]
  - Off label use [Not Recovered/Not Resolved]

NARRATIVE: CASE EVENT DATE: 20220528
